FAERS Safety Report 4625131-2 (Version None)
Quarter: 2005Q2

REPORT INFORMATION
  Report Type: 
  Country: None (occurrence: None)
  Receive Date: 20050401
  Receipt Date: 20050322
  Transmission Date: 20051028
  Serious: Yes (Hospitalization)
  Sender: FDA-Public Use
  Company Number: 200512312GDDC

PATIENT
  Age: 53 Year
  Sex: Male

DRUGS (4)
  1. NICODERM [Suspect]
     Route: 062
     Dates: start: 19960101, end: 19960101
  2. NIFEDIPINE [Concomitant]
  3. WARFARIN SODIUM [Concomitant]
  4. DIGOXIN [Concomitant]

REACTIONS (1)
  - ARRHYTHMIA [None]
